FAERS Safety Report 6607691-5 (Version None)
Quarter: 2010Q1

REPORT INFORMATION
  Report Type: 
  Country: None (occurrence: None)
  Receive Date: 20100301
  Receipt Date: 20100217
  Transmission Date: 20100710
  Serious: Yes (Other)
  Sender: FDA-Public Use
  Company Number: US-ELI_LILLY_AND_COMPANY-US201002005460

PATIENT
  Age: 29 Year
  Sex: Male

DRUGS (5)
  1. ZYPREXA [Suspect]
     Indication: SCHIZOPHRENIA
     Dosage: 40 MG, DAILY (1/D)
     Dates: start: 20090701
  2. THORAZINE [Concomitant]
     Dosage: 600 MG, DAILY (1/D)
  3. THORAZINE [Concomitant]
     Dosage: 100 MG, DAILY (1/D)
  4. ENAPRIL /00574901/ [Concomitant]
     Dosage: 150 MG, DAILY (1/D)
  5. KLONOPIN [Concomitant]
     Dosage: 2 MG, 2/D
     Dates: start: 20100204

REACTIONS (2)
  - EOSINOPHIL COUNT INCREASED [None]
  - OVERDOSE [None]
